FAERS Safety Report 14683453 (Version 3)
Quarter: 2018Q2

REPORT INFORMATION
  Report Type: Spontaneous
  Country: US (occurrence: US)
  Receive Date: 20180327
  Receipt Date: 20180604
  Transmission Date: 20180711
  Serious: No
  Sender: FDA-Public Use
  Company Number: US-PFIZER INC-2018125017

PATIENT
  Age: 58 Year
  Sex: Female
  Weight: 85 kg

DRUGS (2)
  1. IBRANCE [Suspect]
     Active Substance: PALBOCICLIB
     Indication: BREAST CANCER METASTATIC
     Dosage: 125 MG, CYCLIC (DAILY FOR 21 DAYS, OFF FOR 7)
     Route: 048
     Dates: start: 201801
  2. LETROZOLE. [Suspect]
     Active Substance: LETROZOLE
     Indication: BREAST CANCER METASTATIC
     Dosage: UNK, DAILY
     Dates: start: 201801

REACTIONS (7)
  - Neoplasm progression [Unknown]
  - Malaise [Unknown]
  - Macule [Recovering/Resolving]
  - Fatigue [Not Recovered/Not Resolved]
  - Dizziness [Recovering/Resolving]
  - Rash [Recovering/Resolving]
  - Skin infection [Unknown]

NARRATIVE: CASE EVENT DATE: 2018
